FAERS Safety Report 6081575-6 (Version None)
Quarter: 2009Q1

REPORT INFORMATION
  Report Type: 
  Country: None (occurrence: None)
  Receive Date: 20090218
  Receipt Date: 20090210
  Transmission Date: 20090719
  Serious: Yes (Other)
  Sender: FDA-Public Use
  Company Number: PHHY2009JP05061

PATIENT
  Age: 68 Year
  Sex: Male

DRUGS (1)
  1. LAMISIL [Suspect]
     Dosage: 125 MG/DAY
     Route: 048
     Dates: start: 20090108, end: 20090120

REACTIONS (2)
  - BLINDNESS TRANSIENT [None]
  - VISUAL ACUITY REDUCED [None]
